FAERS Safety Report 5515196-8 (Version None)
Quarter: 2007Q4

REPORT INFORMATION
  Report Type: 
  Country: None (occurrence: None)
  Receive Date: 20071113
  Receipt Date: 20070604
  Transmission Date: 20080405
  Serious: No
  Sender: FDA-Public Use
  Company Number: A0638360A

PATIENT
  Age: 76 Year
  Sex: Female
  Weight: 81.8 kg

DRUGS (15)
  1. COREG [Suspect]
     Dosage: 25MG TWICE PER DAY
     Route: 048
     Dates: start: 20050701
  2. HUMULIN R [Concomitant]
  3. FUROSEMIDE [Concomitant]
     Dosage: 60MG TWICE PER DAY
     Route: 048
  4. PREDNISOLONE [Concomitant]
     Dosage: 10MG PER DAY
     Route: 048
  5. ACCUPRIL [Concomitant]
     Dosage: 20MG PER DAY
  6. WARFARIN SODIUM [Concomitant]
  7. ZYRTEC [Concomitant]
  8. ZETIA [Concomitant]
     Dosage: 10MG AT NIGHT
  9. TRAMADOL [Concomitant]
     Dosage: 50MG TWICE PER DAY
     Route: 048
  10. ASTELIN [Concomitant]
  11. LIPITOR [Concomitant]
     Dosage: 40MG AT NIGHT
  12. AZOPT [Concomitant]
  13. XALATAN [Concomitant]
  14. ANTIBIOTIC [Concomitant]
  15. IRON SUPPLEMENT [Concomitant]

REACTIONS (2)
  - BLOOD GLUCOSE INCREASED [None]
  - DYSPNOEA [None]
